FAERS Safety Report 6000345-8 (Version None)
Quarter: 2008Q4

REPORT INFORMATION
  Report Type: 
  Country: None (occurrence: None)
  Receive Date: 20081215
  Receipt Date: 20081105
  Transmission Date: 20090506
  Serious: No
  Sender: FDA-Public Use
  Company Number: US-BAYER-200814737BCC

PATIENT
  Age: 62 Year
  Sex: Female

DRUGS (10)
  1. ALEVE (CAPLET) [Suspect]
     Indication: MENSTRUAL DISORDER
     Dosage: UNIT DOSE: 220 MG
     Dates: start: 20081105
  2. ALEVE (CAPLET) [Suspect]
     Dosage: UNIT DOSE: 220 MG
     Dates: start: 20081105
  3. TOPROL-XL [Concomitant]
  4. K DUR [Concomitant]
  5. LASIX [Concomitant]
  6. BUMEX [Concomitant]
  7. DITROPAN [Concomitant]
  8. GLIPIZIDE [Concomitant]
  9. AVANDIA [Concomitant]
  10. AMITRIPTYLINE HCL [Concomitant]

REACTIONS (1)
  - NO ADVERSE EVENT [None]
